FAERS Safety Report 7019610-0 (Version None)
Quarter: 2010Q3

REPORT INFORMATION
  Report Type: 
  Country: None (occurrence: None)
  Receive Date: 20100928
  Receipt Date: 20100928
  Transmission Date: 20110219
  Serious: Yes (Hospitalization)
  Sender: FDA-Public Use
  Company Number: None

PATIENT
  Age: 66 Year
  Sex: Male
  Weight: 76.6 kg

DRUGS (1)
  1. IBUPROFEN [Suspect]
     Indication: FIBROMYALGIA
     Dosage: 600 MG TID PO
     Route: 048
     Dates: start: 19930714, end: 20100629

REACTIONS (3)
  - ABDOMINAL PAIN [None]
  - DUODENAL ULCER [None]
  - GASTRITIS [None]
